FAERS Safety Report 6733796-4 (Version None)
Quarter: 2010Q2

REPORT INFORMATION
  Report Type: 
  Country: None (occurrence: None)
  Receive Date: 20100520
  Receipt Date: 20100510
  Transmission Date: 20101027
  Serious: Yes (Hospitalization)
  Sender: FDA-Public Use
  Company Number: US-JNJFOC-20100505850

PATIENT
  Age: 18 Month
  Sex: Male

DRUGS (4)
  1. CHILDREN'S TYLENOL [Suspect]
     Route: 048
  2. CHILDREN'S TYLENOL [Suspect]
     Indication: PYREXIA
     Route: 048
  3. CHILDREN'S MOTRIN [Suspect]
     Route: 048
  4. CHILDREN'S MOTRIN [Suspect]
     Indication: PYREXIA
     Route: 048

REACTIONS (2)
  - HOSPITALISATION [None]
  - PRODUCT QUALITY ISSUE [None]
